FAERS Safety Report 24794115 (Version 1)
Quarter: 2024Q4

REPORT INFORMATION
  Report Type: Spontaneous
  Country: US (occurrence: None)
  Receive Date: 20241231
  Receipt Date: 20241231
  Transmission Date: 20250115
  Serious: Yes (Hospitalization)
  Sender: Public
  Company Number: None

PATIENT
  Age: 50 Year
  Sex: Male

DRUGS (2)
  1. TEMOZOLOMIDE [Suspect]
     Active Substance: TEMOZOLOMIDE
     Dosage: OTHER FREQUENCY : DAILY 1-5 OF EACH 28CS;?
     Route: 048
     Dates: start: 202406
  2. TEMOZOLOMIDE [Suspect]
     Active Substance: TEMOZOLOMIDE
     Dosage: OTHER FREQUENCY : DAYS 1-5;?
     Dates: start: 202406

REACTIONS (6)
  - Confusional state [None]
  - General physical condition abnormal [None]
  - Asthenia [None]
  - Dizziness [None]
  - Headache [None]
  - Brain oedema [None]

NARRATIVE: CASE EVENT DATE: 20241201
